FAERS Safety Report 16321203 (Version 2)
Quarter: 2019Q2

REPORT INFORMATION
  Report Type: Spontaneous
  Country: CN (occurrence: CN)
  Receive Date: 20190516
  Receipt Date: 20190520
  Transmission Date: 20190711
  Serious: Yes (Other)
  Sender: FDA-Public Use
  Company Number: CN-PFIZER INC-2019202991

PATIENT
  Age: 58 Year
  Sex: Female
  Weight: 60 kg

DRUGS (5)
  1. BO PU QING [Concomitant]
     Indication: COAGULOPATHY
     Dosage: 4000 IU, 1X/DAY
     Route: 058
     Dates: start: 20190422, end: 20190423
  2. SOLU-MEDROL [Suspect]
     Active Substance: METHYLPREDNISOLONE SODIUM SUCCINATE
     Indication: INFLAMMATION
     Dosage: 40 MG, 1X/DAY
     Route: 041
     Dates: start: 20190418, end: 20190424
  3. ROCEPHIN [Concomitant]
     Active Substance: CEFTRIAXONE SODIUM
     Indication: INFECTION
     Dosage: 2 G, 2X/DAY
     Route: 041
     Dates: start: 20190418, end: 20190423
  4. XIN LUO NA [Concomitant]
     Indication: GASTROINTESTINAL MOTILITY DISORDER
     Dosage: 5 MG, 3X/DAY
     Route: 048
     Dates: start: 20190420, end: 20190424
  5. FLUIMUCIL [Suspect]
     Active Substance: ACETYLCYSTEINE
     Indication: PRODUCTIVE COUGH
     Dosage: 0.6 G, 2X/DAY
     Route: 045
     Dates: start: 20190420, end: 20190424

REACTIONS (6)
  - Atrioventricular block [Recovering/Resolving]
  - Blood pressure decreased [Recovering/Resolving]
  - Electrocardiogram ST-T change [Recovering/Resolving]
  - Tachyarrhythmia [Recovering/Resolving]
  - Atrial fibrillation [Recovering/Resolving]
  - Oxygen saturation decreased [Recovering/Resolving]

NARRATIVE: CASE EVENT DATE: 20190422
